FAERS Safety Report 22038160 (Version 1)
Quarter: 2023Q1

REPORT INFORMATION
  Report Type: Spontaneous
  Country: JP (occurrence: JP)
  Receive Date: 20230227
  Receipt Date: 20230227
  Transmission Date: 20230418
  Serious: Yes (Hospitalization, Other)
  Sender: FDA-Public Use
  Company Number: JP-CHUGAI-2023005295

PATIENT
  Age: 77 Year
  Sex: Female

DRUGS (2)
  1. ACTEMRA [Suspect]
     Active Substance: TOCILIZUMAB
     Indication: Rheumatoid arthritis
     Dosage: 162 MILLIGRAM, ONCE/2WEEKS
     Route: 058
     Dates: start: 2016
  2. GALLIUM CITRATE GA-67 [Suspect]
     Active Substance: GALLIUM CITRATE GA-67
     Indication: Product used for unknown indication
     Dosage: UNK
     Route: 042

REACTIONS (7)
  - Blood pressure decreased [Recovered/Resolved]
  - Pulmonary oedema [Unknown]
  - Cardiac arrest [Unknown]
  - Lung opacity [Unknown]
  - Electrocardiogram abnormal [Unknown]
  - Urine odour abnormal [Unknown]
  - Treatment noncompliance [Unknown]
